FAERS Safety Report 7091385-9 (Version None)
Quarter: 2010Q4

REPORT INFORMATION
  Report Type: 
  Country: None (occurrence: None)
  Receive Date: 20101109
  Receipt Date: 20101104
  Transmission Date: 20110411
  Serious: Yes (Other)
  Sender: FDA-Public Use
  Company Number: A0890900A

PATIENT
  Sex: Female

DRUGS (11)
  1. VENTOLIN HFA [Suspect]
     Indication: CHRONIC OBSTRUCTIVE PULMONARY DISEASE
     Dosage: 2PUFF AS REQUIRED
     Route: 055
     Dates: start: 20091001
  2. FLOVENT [Suspect]
     Indication: CHRONIC OBSTRUCTIVE PULMONARY DISEASE
     Dosage: 2PUFF TWICE PER DAY
     Route: 055
  3. FLOVENT [Suspect]
     Route: 055
     Dates: start: 20090101
  4. OXYGEN [Concomitant]
  5. FOSAMAX [Concomitant]
  6. AMLODIPINE [Concomitant]
  7. ASPIRIN [Concomitant]
  8. ARIMIDEX [Concomitant]
  9. VITAMIN D [Concomitant]
  10. MAGNESIUM [Concomitant]
  11. CENTRUM [Concomitant]

REACTIONS (3)
  - BREAST CANCER [None]
  - DRUG INEFFECTIVE [None]
  - OSTEOPOROSIS [None]
